FAERS Safety Report 5844061-1 (Version None)
Quarter: 2008Q3

REPORT INFORMATION
  Report Type: 
  Country: None (occurrence: None)
  Receive Date: 20080731
  Receipt Date: 20080424
  Transmission Date: 20090109
  Serious: No
  Sender: FDA-Public Use
  Company Number: US200804006441

PATIENT
  Age: 63 Year
  Sex: Female

DRUGS (6)
  1. BYETTA [Suspect]
     Indication: TYPE 2 DIABETES MELLITUS
     Dosage: 5 UG, 2/D, SUBCUTANEOUS : 10 UG, 2/D, SUBCUTANEOUS
     Route: 058
     Dates: end: 20080421
  2. BYETTA [Suspect]
     Indication: TYPE 2 DIABETES MELLITUS
     Dosage: 5 UG, 2/D, SUBCUTANEOUS : 10 UG, 2/D, SUBCUTANEOUS
     Route: 058
     Dates: start: 20080421
  3. MICRONASE [Concomitant]
  4. GLUCOPHAGE [Concomitant]
  5. ACTOS [Concomitant]
  6. ASPIRIN [Concomitant]

REACTIONS (7)
  - ASTHENIA [None]
  - BLOOD GLUCOSE INCREASED [None]
  - DYSPEPSIA [None]
  - GLYCOSYLATED HAEMOGLOBIN INCREASED [None]
  - INJECTION SITE HAEMATOMA [None]
  - INJECTION SITE HAEMORRHAGE [None]
  - INJECTION SITE PRURITUS [None]
